FAERS Safety Report 9324149 (Version 1)
Quarter: 2013Q2

REPORT INFORMATION
  Report Type: Spontaneous
  Country: FR (occurrence: FR)
  Receive Date: 20130603
  Receipt Date: 20130603
  Transmission Date: 20140414
  Serious: Yes (Hospitalization)
  Sender: FDA-Public Use
  Company Number: FR-AMGEN-FRASP2013038089

PATIENT
  Age: 66 Year
  Sex: Female

DRUGS (16)
  1. ARANESP [Suspect]
     Indication: ANAEMIA
     Dosage: UNK
     Dates: start: 201210, end: 201212
  2. HERCEPTIN [Suspect]
     Dosage: UNK
     Dates: start: 20120820, end: 20121229
  3. TAXOL [Suspect]
  4. SOLUMEDROL [Suspect]
     Indication: PREMEDICATION
     Dosage: UNK
     Dates: start: 201208, end: 201212
  5. PRIMPERAN [Suspect]
     Indication: PREMEDICATION
     Dosage: UNK
     Dates: start: 201208, end: 201212
  6. ONDANSETRON [Suspect]
     Indication: PREMEDICATION
     Dosage: UNK
     Dates: start: 201208, end: 201212
  7. POLARAMINE [Suspect]
     Indication: PREMEDICATION
     Dosage: UNK
     Dates: start: 201212, end: 201212
  8. RANITIDINE [Suspect]
     Indication: PREMEDICATION
     Dosage: UNK
     Dates: end: 2012
  9. SECTRAL [Concomitant]
     Dosage: 200 MG, UNK
  10. MOPRAL                             /00661201/ [Concomitant]
  11. CRESTOR [Concomitant]
     Dosage: 5 MG, UNK
  12. CORDARONE [Concomitant]
  13. LEVOTHYROX [Concomitant]
     Dosage: 100 MG, UNK
  14. LASILIX                            /00032601/ [Concomitant]
     Dosage: 40 MG, UNK
  15. PROXETINE [Concomitant]
  16. KARDEGIC [Concomitant]
     Dosage: 160 MG, UNK

REACTIONS (1)
  - Cardiac failure [Recovered/Resolved with Sequelae]
